FAERS Safety Report 16892950 (Version 15)
Quarter: 2020Q4

REPORT INFORMATION
  Report Type: Spontaneous
  Country: CA (occurrence: CA)
  Receive Date: 20191007
  Receipt Date: 20201015
  Transmission Date: 20210113
  Serious: Yes (Hospitalization, Other)
  Sender: FDA-Public Use
  Company Number: CA-CELLTRION INC.-2018CA020229

PATIENT

DRUGS (29)
  1. INFLECTRA [Suspect]
     Active Substance: INFLIXIMAB-DYYB
     Dosage: 655 MG, UNK
     Route: 042
     Dates: start: 20180719
  2. INFLECTRA [Suspect]
     Active Substance: INFLIXIMAB-DYYB
     Dosage: 655 MG, UNK
     Route: 042
     Dates: start: 20180904
  3. INFLECTRA [Suspect]
     Active Substance: INFLIXIMAB-DYYB
     Dosage: 655 MG, EVERY 8 WEEKS
     Route: 042
     Dates: start: 20190220
  4. INFLECTRA [Suspect]
     Active Substance: INFLIXIMAB-DYYB
     Dosage: 655 MG, EVERY 6 WEEKS
     Route: 042
     Dates: start: 20190816, end: 20200625
  5. MULTIVITAMIN [ASCORBIC ACID;BIOTIN;CALCIUM PANTOTHENATE;CYANOCOBALAMIN [Concomitant]
     Active Substance: VITAMINS
     Dosage: UNK, 2X/DAY
     Route: 048
  6. INFLECTRA [Suspect]
     Active Substance: INFLIXIMAB-DYYB
     Dosage: 655 MG, EVERY 6 WEEKS
     Route: 042
     Dates: start: 20201002
  7. HYDROCORTISONE. [Concomitant]
     Active Substance: HYDROCORTISONE
     Indication: PREMEDICATION
     Dosage: 100 MG, UNK
     Route: 042
     Dates: start: 20191122, end: 20191122
  8. HYDROCORTISONE. [Concomitant]
     Active Substance: HYDROCORTISONE
     Dosage: 100 MG, UNK
     Route: 042
     Dates: start: 20200625, end: 20200625
  9. INFLECTRA [Suspect]
     Active Substance: INFLIXIMAB-DYYB
     Dosage: 655 MG, EVERY 8 WEEKS
     Route: 042
     Dates: start: 20180517, end: 20190620
  10. INFLECTRA [Suspect]
     Active Substance: INFLIXIMAB-DYYB
     Dosage: 655 MG, UNK
     Route: 042
     Dates: start: 20181031
  11. INFLECTRA [Suspect]
     Active Substance: INFLIXIMAB-DYYB
     Dosage: 655 MG EVERY 8 WEEKS
     Route: 042
     Dates: start: 20190816
  12. INFLECTRA [Suspect]
     Active Substance: INFLIXIMAB-DYYB
     Dosage: 655 MG, EVERY 6 WEEKS
     Route: 042
     Dates: start: 20200220
  13. TECTA [Concomitant]
     Active Substance: PANTOPRAZOLE MAGNESIUM
     Dosage: 40 MG, DAILY (QD)
     Route: 048
  14. DIPHENHYDRAMINE. [Concomitant]
     Active Substance: DIPHENHYDRAMINE
     Indication: PREMEDICATION
     Dosage: 50 MG, UNK
     Route: 065
     Dates: start: 20191122, end: 20191122
  15. INFLECTRA [Suspect]
     Active Substance: INFLIXIMAB-DYYB
     Dosage: 610 MG, EVERY 0, 2, 6 WEEKS, THEN EVERY 8 WEEKS
     Route: 042
     Dates: start: 20180418, end: 20180418
  16. INFLECTRA [Suspect]
     Active Substance: INFLIXIMAB-DYYB
     Dosage: 655 MG, EVERY 8 WEEKS
     Route: 042
     Dates: start: 20190416
  17. INFLECTRA [Suspect]
     Active Substance: INFLIXIMAB-DYYB
     Dosage: 655 MG, EVERY 8 WEEKS
     Route: 042
     Dates: start: 20190620
  18. INFLECTRA [Suspect]
     Active Substance: INFLIXIMAB-DYYB
     Dosage: 655 MG EVERY 8 WEEKS
     Route: 042
     Dates: start: 20190816
  19. INFLECTRA [Suspect]
     Active Substance: INFLIXIMAB-DYYB
     Dosage: 655 MG EVERY 8 WEEKS
     Route: 042
     Dates: start: 20191011
  20. INFLECTRA [Suspect]
     Active Substance: INFLIXIMAB-DYYB
     Dosage: 655 MG, EVERY 6 WEEKS
     Route: 042
     Dates: start: 20200820
  21. DIPHENHYDRAMINE. [Concomitant]
     Active Substance: DIPHENHYDRAMINE
     Dosage: 50 MG, UNK
     Route: 048
     Dates: start: 20200820, end: 20200820
  22. INFLECTRA [Suspect]
     Active Substance: INFLIXIMAB-DYYB
     Dosage: 655 MG EVERY 6 WEEKS
     Route: 042
     Dates: start: 20191122
  23. HYDROCORTISONE. [Concomitant]
     Active Substance: HYDROCORTISONE
     Dosage: 100 MG, UNK
     Route: 042
     Dates: start: 20200820, end: 20200820
  24. INFLECTRA [Suspect]
     Active Substance: INFLIXIMAB-DYYB
     Dosage: 655 MG, EVERY 8 WEEKS
     Route: 042
     Dates: start: 20181227
  25. INFLECTRA [Suspect]
     Active Substance: INFLIXIMAB-DYYB
     Dosage: 655 MG, EVERY 6 WEEKS
     Route: 042
     Dates: start: 20200625, end: 20200625
  26. DIPHENHYDRAMINE. [Concomitant]
     Active Substance: DIPHENHYDRAMINE
     Dosage: 50 MG, UNK
     Route: 048
     Dates: start: 20200625, end: 20200625
  27. INFLECTRA [Suspect]
     Active Substance: INFLIXIMAB-DYYB
     Indication: CROHN^S DISEASE
     Dosage: 610 MG, EVERY 0, 2, 6 WEEKS, THEN EVERY 8 WEEKS
     Route: 042
     Dates: start: 20180404, end: 20180418
  28. INFLECTRA [Suspect]
     Active Substance: INFLIXIMAB-DYYB
     Dosage: 655 MG, EVERY 6 WEEKS
     Route: 042
     Dates: start: 20200116
  29. INFLECTRA [Suspect]
     Active Substance: INFLIXIMAB-DYYB
     Dosage: 655 MG, EVERY 6 WEEKS
     Route: 042
     Dates: start: 20200515

REACTIONS (24)
  - Off label use [Unknown]
  - Blood pressure fluctuation [Unknown]
  - Nasopharyngitis [Recovering/Resolving]
  - Weight decreased [Unknown]
  - Pyrexia [Recovered/Resolved]
  - Drug level decreased [Unknown]
  - Illness [Unknown]
  - Drug level increased [Unknown]
  - Infection [Recovering/Resolving]
  - Condition aggravated [Not Recovered/Not Resolved]
  - Malaise [Unknown]
  - Dizziness [Unknown]
  - Migraine [Unknown]
  - Injury [Unknown]
  - Product use issue [Unknown]
  - Intentional product use issue [Unknown]
  - Chest pain [Unknown]
  - Jaundice [Unknown]
  - Inappropriate schedule of product administration [Unknown]
  - Weight increased [Not Recovered/Not Resolved]
  - Blood pressure increased [Unknown]
  - Fall [Unknown]
  - Oropharyngeal pain [Unknown]
  - Heart rate decreased [Unknown]

NARRATIVE: CASE EVENT DATE: 20180517
